FAERS Safety Report 4413775-2 (Version None)
Quarter: 2004Q3

REPORT INFORMATION
  Report Type: 
  Country: None (occurrence: None)
  Receive Date: 20040803
  Receipt Date: 20040720
  Transmission Date: 20050211
  Serious: Yes (Hospitalization)
  Sender: FDA-Public Use
  Company Number: US-BRISTOL-MYERS SQUIBB COMPANY-12646345

PATIENT
  Age: 19 Year
  Sex: Female

DRUGS (5)
  1. ABILIFY [Suspect]
     Indication: DEPRESSION
     Dosage: DECREASED TO 5 MG/DAY ON 11-JUL-2004, THEN DISCONTINUED (DATE NOT REPORTED).
     Route: 048
     Dates: start: 20040528
  2. ABILIFY [Suspect]
     Indication: POST-TRAUMATIC STRESS DISORDER
     Dosage: DECREASED TO 5 MG/DAY ON 11-JUL-2004, THEN DISCONTINUED (DATE NOT REPORTED).
     Route: 048
     Dates: start: 20040528
  3. ABILIFY [Suspect]
     Indication: MILD MENTAL RETARDATION
     Dosage: DECREASED TO 5 MG/DAY ON 11-JUL-2004, THEN DISCONTINUED (DATE NOT REPORTED).
     Route: 048
     Dates: start: 20040528
  4. PROZAC [Concomitant]
  5. DEPAKOTE [Concomitant]

REACTIONS (7)
  - BLOOD CALCIUM DECREASED [None]
  - BLOOD CREATINE PHOSPHOKINASE INCREASED [None]
  - CLONUS [None]
  - INTENTIONAL SELF-INJURY [None]
  - OEDEMA PERIPHERAL [None]
  - RESTLESSNESS [None]
  - STUPOR [None]
